FAERS Safety Report 8171712-1 (Version None)
Quarter: 2012Q1

REPORT INFORMATION
  Report Type: 
  Country: None (occurrence: None)
  Receive Date: 20120228
  Receipt Date: 20120223
  Transmission Date: 20120608
  Serious: Yes (Hospitalization)
  Sender: FDA-Public Use
  Company Number: FR-ABBOTT-12P-056-0908704-00

PATIENT
  Age: 29 Year
  Sex: Male

DRUGS (11)
  1. NOZINAN [Suspect]
     Indication: CHILDHOOD PSYCHOSIS
     Route: 048
     Dates: start: 20111101
  2. LEPTICUR [Suspect]
     Route: 030
  3. CLOPIXOL [Suspect]
     Route: 030
     Dates: start: 20111101
  4. TRIMEPRAZINE TARTRATE [Suspect]
     Indication: CHILDHOOD PSYCHOSIS
     Dosage: 30 DROPS DAILY
     Route: 048
     Dates: start: 20060701
  5. TERCIAN [Concomitant]
     Indication: PRODUCT USED FOR UNKNOWN INDICATION
  6. TRIMEPRAZINE TARTRATE [Suspect]
     Dosage: 30 DROPS DAILY
     Route: 048
     Dates: start: 20111101
  7. TRANXENE [Suspect]
     Indication: PRODUCT USED FOR UNKNOWN INDICATION
     Route: 048
     Dates: start: 20111223
  8. LEPTICUR [Suspect]
     Indication: PRODUCT USED FOR UNKNOWN INDICATION
     Route: 030
     Dates: start: 20060701
  9. LOXAPINE HCL [Concomitant]
     Indication: PRODUCT USED FOR UNKNOWN INDICATION
     Dates: start: 20111101
  10. CLOPIXOL [Suspect]
     Indication: CHILDHOOD PSYCHOSIS
     Route: 030
     Dates: start: 20090701
  11. DEPAKENE [Suspect]
     Indication: PRODUCT USED FOR UNKNOWN INDICATION
     Route: 048
     Dates: start: 20111213

REACTIONS (8)
  - ALTERED STATE OF CONSCIOUSNESS [None]
  - OVERDOSE [None]
  - PYREXIA [None]
  - MUSCLE RIGIDITY [None]
  - CONFUSIONAL STATE [None]
  - TACHYCARDIA [None]
  - GAIT DISTURBANCE [None]
  - SOMNOLENCE [None]
